FAERS Safety Report 4754186-X (Version None)
Quarter: 2005Q3

REPORT INFORMATION
  Report Type: 
  Country: None (occurrence: None)
  Receive Date: 20050823
  Receipt Date: 20041202
  Transmission Date: 20060218
  Serious: Yes (Other)
  Sender: FDA-Public Use
  Company Number: PHEH2004US11504

PATIENT
  Age: 77 Year
  Sex: Female

DRUGS (3)
  1. LOTENSIN [Suspect]
     Indication: HYPERTENSION
     Dosage: 10 MG, QD, ORAL
     Route: 048
     Dates: start: 20010101, end: 20040101
  2. ATENOLOL TABLETS USP (NGX) (ATENOLOL) TABLET [Concomitant]
  3. ZOCOR [Concomitant]

REACTIONS (2)
  - ANGIONEUROTIC OEDEMA [None]
  - SWELLING FACE [None]
